FAERS Safety Report 6139615-1 (Version None)
Quarter: 2009Q1

REPORT INFORMATION
  Report Type: 
  Country: None (occurrence: None)
  Receive Date: 20090331
  Receipt Date: 20090331
  Transmission Date: 20090719
  Serious: No
  Sender: FDA-Public Use
  Company Number: None

PATIENT
  Age: 70 Year
  Sex: Female
  Weight: 53.5244 kg

DRUGS (4)
  1. ALENDRONATE SODIUM [Suspect]
     Indication: OSTEOPOROSIS
     Dosage: 70MG ONCE Q WEEK PO
     Route: 048
     Dates: start: 20080201
  2. ALENDRONATE SODIUM [Suspect]
     Indication: OSTEOPOROSIS
     Dosage: 70MG ONCE Q WEEK PO
     Route: 048
     Dates: start: 20080301
  3. ALENDRONATE SODIUM [Suspect]
     Indication: OSTEOPOROSIS
     Dosage: 70MG ONCE Q WEEK PO
     Route: 048
     Dates: start: 20080701
  4. ALENDRONATE SODIUM [Suspect]
     Indication: OSTEOPOROSIS
     Dosage: 70MG ONCE Q WEEK PO
     Route: 048
     Dates: start: 20080801

REACTIONS (1)
  - ARTHRALGIA [None]
